FAERS Safety Report 19781459 (Version 2)
Quarter: 2021Q3

REPORT INFORMATION
  Report Type: Spontaneous
  Country: FR (occurrence: FR)
  Receive Date: 20210902
  Receipt Date: 20210906
  Transmission Date: 20211014
  Serious: Yes (Hospitalization)
  Sender: FDA-Public Use
  Company Number: FR-MYLANLABS-2021M1057701

PATIENT
  Age: 62 Year
  Sex: Male
  Weight: 84 kg

DRUGS (7)
  1. LANSOPRAZOLE. [Suspect]
     Active Substance: LANSOPRAZOLE
     Indication: GASTROOESOPHAGEAL REFLUX DISEASE
     Dosage: UNK
     Route: 048
     Dates: start: 20210216, end: 20210310
  2. COVERSYL                           /00790703/ [Concomitant]
     Active Substance: PERINDOPRIL
     Dosage: 5 MILLIGRAM, QD
     Route: 048
  3. EDUCTYL [Concomitant]
     Active Substance: POTASSIUM BITARTRATE\SODIUM BICARBONATE
     Dosage: UNK
  4. ISENTRESS [Suspect]
     Active Substance: RALTEGRAVIR POTASSIUM
     Indication: HIV TEST POSITIVE
     Dosage: 1200 MILLIGRAM, QD
     Route: 048
     Dates: start: 20210111
  5. LYSANXIA [Concomitant]
     Active Substance: PRAZEPAM
     Dosage: 10 MILLIGRAM, QD
     Route: 048
  6. ALFUZOSINE HYDROCHLORIDE [Concomitant]
     Active Substance: ALFUZOSIN HYDROCHLORIDE
     Dosage: UNK
     Route: 048
  7. DORAVIRINE [Suspect]
     Active Substance: DORAVIRINE
     Indication: HIV TEST POSITIVE
     Dosage: 100 MILLIGRAM, QD
     Route: 048
     Dates: start: 20210111

REACTIONS (1)
  - Drug reaction with eosinophilia and systemic symptoms [Recovering/Resolving]

NARRATIVE: CASE EVENT DATE: 20210302
